FAERS Safety Report 19372133 (Version 1)
Quarter: 2021Q2

REPORT INFORMATION
  Report Type: Spontaneous
  Country: US (occurrence: US)
  Receive Date: 20210603
  Receipt Date: 20210603
  Transmission Date: 20210717
  Serious: No
  Sender: FDA-Public Use
  Company Number: None

PATIENT
  Age: 71 Year
  Sex: Male
  Weight: 96 kg

DRUGS (1)
  1. LOSARTAN (LOSARTAN 50MG TAB) [Suspect]
     Active Substance: LOSARTAN
     Indication: HYPERTENSION
     Route: 048
     Dates: start: 20190830, end: 20210415

REACTIONS (6)
  - Abdominal distension [None]
  - Angioedema [None]
  - Throat tightness [None]
  - Oropharyngeal pain [None]
  - Musculoskeletal chest pain [None]
  - Dysphagia [None]

NARRATIVE: CASE EVENT DATE: 20210416
